FAERS Safety Report 5276533-5 (Version None)
Quarter: 2007Q1

REPORT INFORMATION
  Report Type: 
  Country: None (occurrence: None)
  Receive Date: 20061213
  Receipt Date: 20050222
  Transmission Date: 20070707
  Serious: No
  Sender: FDA-Public Use
  Company Number: 2004UW25387

PATIENT
  Age: 39 Year
  Sex: Male
  Weight: 88.4514 kg

DRUGS (1)
  1. SEROQUEL [Suspect]
     Dosage: 75 MG DAILY PO
     Route: 048
     Dates: start: 20031001, end: 20031001

REACTIONS (1)
  - CATARACT [None]
